FAERS Safety Report 13699003 (Version 1)
Quarter: 2017Q2

REPORT INFORMATION
  Report Type: Spontaneous
  Country: IT (occurrence: IT)
  Receive Date: 20170628
  Receipt Date: 20170628
  Transmission Date: 20170830
  Serious: Yes (Hospitalization, Other)
  Sender: FDA-Public Use
  Company Number: IT-MYLANLABS-2017M1038019

PATIENT

DRUGS (2)
  1. FUROSEMIDE. [Suspect]
     Active Substance: FUROSEMIDE
     Indication: PRODUCT USED FOR UNKNOWN INDICATION
     Dosage: 50 MG DAILY
     Route: 048
  2. PANTOPRAZOLE [Suspect]
     Active Substance: PANTOPRAZOLE
     Indication: PRODUCT USED FOR UNKNOWN INDICATION
     Dosage: 40 MG DAILY
     Route: 048

REACTIONS (6)
  - Hypomagnesaemia [Recovered/Resolved]
  - Epilepsy [Recovered/Resolved]
  - Muscle rigidity [Recovered/Resolved]
  - Amnesia [Recovered/Resolved]
  - Tongue biting [Recovered/Resolved]
  - Hypocalcaemia [Recovered/Resolved]
